FAERS Safety Report 4469759-1 (Version None)
Quarter: 2004Q4

REPORT INFORMATION
  Report Type: 
  Country: None (occurrence: None)
  Receive Date: 20041008
  Receipt Date: 20040907
  Transmission Date: 20050328
  Serious: Yes (Hospitalization, Disabling)
  Sender: FDA-Public Use
  Company Number: CA-ROCHE-379865

PATIENT
  Age: 14 Year
  Sex: Female

DRUGS (1)
  1. ACCUTANE [Suspect]
     Indication: ACNE
     Dosage: PATIENT RECEIVED 40 MG AND 10 MG ISOTRETINOIN CAPSULES DURING THIS TIME.
     Route: 048
     Dates: start: 20030115, end: 20030315

REACTIONS (2)
  - HEPATITIS ACUTE [None]
  - SPLENOMEGALY [None]
